FAERS Safety Report 20761912 (Version 4)
Quarter: 2022Q3

REPORT INFORMATION
  Report Type: Report from Study
  Country: CA (occurrence: CA)
  Receive Date: 20220428
  Receipt Date: 20220727
  Transmission Date: 20221026
  Serious: Yes (Other)
  Sender: FDA-Public Use
  Company Number: None

PATIENT
  Age: 60 Year
  Sex: Female
  Weight: 54.8 kg

DRUGS (6)
  1. OPDIVO [Suspect]
     Active Substance: NIVOLUMAB
     Indication: Oesophageal carcinoma
     Dosage: 240 MILLIGRAM, Q2WK
     Route: 042
     Dates: start: 20220303, end: 20220505
  2. SENOKOT [Suspect]
     Active Substance: SENNOSIDES
     Indication: Constipation
     Route: 065
  3. OXALIPLATIN [Concomitant]
     Active Substance: OXALIPLATIN
     Indication: Product used for unknown indication
     Route: 065
  4. SYNTHROID [Concomitant]
     Active Substance: LEVOTHYROXINE SODIUM
     Indication: Product used for unknown indication
     Route: 065
  5. AMLODIPINE [Concomitant]
     Active Substance: AMLODIPINE BESYLATE
     Indication: Product used for unknown indication
     Route: 065
  6. CANDESARTAN [Concomitant]
     Active Substance: CANDESARTAN
     Indication: Product used for unknown indication
     Route: 065

REACTIONS (52)
  - Neuropathy peripheral [Unknown]
  - Haematochezia [Unknown]
  - Constipation [Recovering/Resolving]
  - Somnolence [Recovered/Resolved]
  - Pruritus [Recovering/Resolving]
  - Paraesthesia [Unknown]
  - Alopecia [Recovered/Resolved]
  - Chest discomfort [Recovered/Resolved]
  - Muscle tightness [Recovered/Resolved]
  - Myalgia [Unknown]
  - Arthralgia [Unknown]
  - Back pain [Unknown]
  - Chest pain [Recovered/Resolved]
  - Nausea [Recovering/Resolving]
  - Incision site pain [Recovering/Resolving]
  - Chromaturia [Recovered/Resolved]
  - Decreased appetite [Recovering/Resolving]
  - Fatigue [Recovered/Resolved]
  - Vision blurred [Unknown]
  - Ocular hyperaemia [Unknown]
  - Dry eye [Recovering/Resolving]
  - Hypoaesthesia [Not Recovered/Not Resolved]
  - Neck pain [Recovering/Resolving]
  - Weight decreased [Recovering/Resolving]
  - Pain [Unknown]
  - Product dose omission issue [Unknown]
  - Temperature intolerance [Not Recovered/Not Resolved]
  - Dyspepsia [Recovered/Resolved]
  - Dyspepsia [Recovered/Resolved]
  - Depressed mood [Unknown]
  - Emotional disorder [Unknown]
  - Dry skin [Recovering/Resolving]
  - Pyrexia [Recovered/Resolved]
  - Oesophageal pain [Recovered/Resolved]
  - Gastrointestinal pain [Recovered/Resolved]
  - Decubitus ulcer [Recovered/Resolved]
  - Paraesthesia oral [Unknown]
  - Dizziness [Unknown]
  - Increased appetite [Unknown]
  - Photopsia [Unknown]
  - Fall [Unknown]
  - Diarrhoea [Unknown]
  - Urine output decreased [Unknown]
  - Memory impairment [Unknown]
  - Paraesthesia [Unknown]
  - Abdominal pain [Unknown]
  - Eye pain [Unknown]
  - Ligament sprain [Unknown]
  - Joint swelling [Unknown]
  - Contusion [Unknown]
  - Abdominal discomfort [Unknown]
  - Disturbance in attention [Unknown]

NARRATIVE: CASE EVENT DATE: 20220512
